FAERS Safety Report 4315923-1 (Version None)
Quarter: 2004Q1

REPORT INFORMATION
  Report Type: 
  Country: None (occurrence: None)
  Receive Date: 20040311
  Receipt Date: 20040311
  Transmission Date: 20041129
  Serious: No
  Sender: FDA-Public Use
  Company Number: None

PATIENT
  Age: 60 Year
  Sex: Female

DRUGS (2)
  1. CYCLOSPORINE [Suspect]
  2. ZOCOR [Suspect]

REACTIONS (2)
  - MEDICATION ERROR [None]
  - RHABDOMYOLYSIS [None]
